FAERS Safety Report 5289334-9 (Version None)
Quarter: 2007Q2

REPORT INFORMATION
  Report Type: 
  Country: None (occurrence: None)
  Receive Date: 20070404
  Receipt Date: 20070404
  Transmission Date: 20071010
  Serious: Yes (Life-Threatening, Hospitalization)
  Sender: FDA-Public Use
  Company Number: None

PATIENT
  Age: 52 Year
  Sex: Female
  Weight: 96 kg

DRUGS (4)
  1. RISPERDAL CONSTA [Suspect]
     Indication: BIPOLAR DISORDER
     Dosage: 37.5MG   Q2WEEKS  IM  (DURATION: 1 DOSE)
     Route: 030
  2. RISPERDAL CONSTA [Suspect]
     Indication: MANIA
     Dosage: 37.5MG   Q2WEEKS  IM  (DURATION: 1 DOSE)
     Route: 030
  3. DEPAKOTE ER [Suspect]
     Dosage: 500MG   DAILY   PO
     Route: 048
  4. KLONOPIN [Concomitant]

REACTIONS (8)
  - ACUTE MYOCARDIAL INFARCTION [None]
  - DEPRESSED LEVEL OF CONSCIOUSNESS [None]
  - HEPATOTOXICITY [None]
  - HYPERNATRAEMIA [None]
  - HYPERTHERMIA [None]
  - NEUROLEPTIC MALIGNANT SYNDROME [None]
  - RENAL FAILURE ACUTE [None]
  - URINARY TRACT INFECTION [None]
